FAERS Safety Report 10923844 (Version 1)
Quarter: 2015Q1

REPORT INFORMATION
  Report Type: Spontaneous
  Country: US (occurrence: None)
  Receive Date: 20150316
  Receipt Date: 20150316
  Transmission Date: 20150721
  Serious: No
  Sender: FDA-Public Use
  Company Number: None

PATIENT
  Age: 67 Year
  Sex: Female

DRUGS (2)
  1. NITROFURANTOIN. [Suspect]
     Active Substance: NITROFURANTOIN
     Dates: start: 20100817, end: 20120930
  2. PREDNISONE. [Concomitant]
     Active Substance: PREDNISONE

REACTIONS (7)
  - Drug-induced liver injury [None]
  - Smooth muscle antibody positive [None]
  - Scar [None]
  - Aspartate aminotransferase increased [None]
  - Immunoglobulins increased [None]
  - Hepatic fibrosis [None]
  - Alanine aminotransferase increased [None]

NARRATIVE: CASE EVENT DATE: 20120919
